FAERS Safety Report 5008945-9 (Version None)
Quarter: 2006Q2

REPORT INFORMATION
  Report Type: 
  Country: None (occurrence: None)
  Receive Date: 20060518
  Receipt Date: 20060509
  Transmission Date: 20061013
  Serious: Yes (Hospitalization)
  Sender: FDA-Public Use
  Company Number: 163-20785-06020273

PATIENT
  Age: 68 Year
  Sex: Female

DRUGS (4)
  1. THALOMID [Suspect]
     Indication: MYELOFIBROSIS
     Dosage: 50-100 MG, DAILY, ORAL
     Route: 048
     Dates: start: 20051107, end: 20051230
  2. XANAX [Concomitant]
  3. CIPROFLOXACIN HCL [Concomitant]
  4. PREDNISONE TAB [Concomitant]

REACTIONS (6)
  - ERYTHEMA [None]
  - FINGER AMPUTATION [None]
  - GANGRENE [None]
  - NAIL BED INFECTION [None]
  - NAIL DISCOLOURATION [None]
  - PAIN IN EXTREMITY [None]
